FAERS Safety Report 14952318 (Version 2)
Quarter: 2018Q2

REPORT INFORMATION
  Report Type: Spontaneous
  Country: US (occurrence: US)
  Receive Date: 20180530
  Receipt Date: 20180621
  Transmission Date: 20180711
  Serious: No
  Sender: FDA-Public Use
  Company Number: US-PFIZER INC-2018213734

PATIENT
  Age: 77 Year
  Sex: Female

DRUGS (2)
  1. BESPONSA [Suspect]
     Active Substance: INOTUZUMAB OZOGAMICIN
     Indication: ACUTE LYMPHOCYTIC LEUKAEMIA
     Dosage: 1 MG/ML, CYCLIC (DAY 1, DAY 8, AND DAY 15)
  2. BESPONSA [Suspect]
     Active Substance: INOTUZUMAB OZOGAMICIN
     Dosage: 1 MG/ML CYCLIC (DAY 1, DAY 8, AND DAY 15) (CYCLE 2)
     Dates: start: 20180618

REACTIONS (3)
  - Malaise [Unknown]
  - Tremor [Unknown]
  - Mutism [Unknown]
